FAERS Safety Report 4505439-1 (Version None)
Quarter: 2004Q4

REPORT INFORMATION
  Report Type: 
  Country: None (occurrence: None)
  Receive Date: 20041018
  Receipt Date: 20040831
  Transmission Date: 20050328
  Serious: Yes (Other)
  Sender: FDA-Public Use
  Company Number: 208489

PATIENT
  Age: 61 Year
  Sex: Female

DRUGS (13)
  1. XOLAIR [Suspect]
     Indication: ASTHMA
     Dosage: 300 MG Q4W SUBCUTANEOUS
     Route: 058
     Dates: start: 20010501, end: 20030102
  2. ADVAIR DISKUS (SALMETEROL XINAFOATE, FLUTICASONE PROPIONATE) [Concomitant]
  3. FLONASE [Concomitant]
  4. ZYRTEC [Concomitant]
  5. SINGULAIR [Concomitant]
  6. NXIUM (ESOMEPRAZOLE MAGNESIUM) [Concomitant]
  7. LEXAPRO [Concomitant]
  8. AVALIDE (HYDROCHLOROTHIAZIDE) [Concomitant]
  9. NORVASC [Concomitant]
  10. COSAMIN DS (CHONDROITIN SULFATE, GLUCOSAMINE, MANGANESE) [Concomitant]
  11. ALBUTEROL (ALBUTEROL, ALBUTEROL SULFATE) [Concomitant]
  12. FLEXERIL [Concomitant]
  13. DURATUSS (GUAIFENESIN, PSEUDOEPHEDRINE HYDROCHLORIDE) [Concomitant]

REACTIONS (1)
  - RENAL CELL CARCINOMA STAGE UNSPECIFIED [None]
